FAERS Safety Report 7556476-4 (Version None)
Quarter: 2011Q2

REPORT INFORMATION
  Report Type: 
  Country: None (occurrence: None)
  Receive Date: 20110615
  Receipt Date: 20110615
  Transmission Date: 20111010
  Serious: Yes (Hospitalization)
  Sender: FDA-Public Use
  Company Number: None

PATIENT
  Age: 44 Year
  Sex: Male

DRUGS (1)
  1. TRIMETHOPRIM + SULFAMETHOXAZOLE [Suspect]
     Indication: SINUSITIS
     Dosage: PO
     Route: 048
     Dates: start: 20110408, end: 20110414

REACTIONS (6)
  - DEHYDRATION [None]
  - CLOSTRIDIUM DIFFICILE COLITIS [None]
  - TACHYCARDIA [None]
  - BLOOD CREATININE INCREASED [None]
  - RASH [None]
  - HEPATITIS ACUTE [None]
